FAERS Safety Report 5600486-0 (Version None)
Quarter: 2008Q1

REPORT INFORMATION
  Report Type: 
  Country: None (occurrence: None)
  Receive Date: 20080118
  Receipt Date: 20071227
  Transmission Date: 20080703
  Serious: Yes (Other)
  Sender: FDA-Public Use
  Company Number: 12272007-CG

PATIENT
  Age: 20 Year
  Sex: Female
  Weight: 99.7913 kg

DRUGS (5)
  1. HURRICAINE TOPICAL ANESTHETIC SPRAY - 20% BENZOCAINE ORAL ANESTHETIC B [Suspect]
     Indication: TONSILLECTOMY
     Dosage: 2 SPRAYS EVERY 2 HOURS ORALLY
     Route: 048
     Dates: start: 20071213, end: 20071215
  2. IV ANCEF [Concomitant]
  3. DILAUDID [Concomitant]
  4. ROCEPHIN [Concomitant]
  5. ZITHROMAX [Concomitant]

REACTIONS (1)
  - METHAEMOGLOBINAEMIA [None]
